FAERS Safety Report 7909205-6 (Version None)
Quarter: 2011Q4

REPORT INFORMATION
  Report Type: 
  Country: None (occurrence: None)
  Receive Date: 20111111
  Receipt Date: 20110914
  Transmission Date: 20120403
  Serious: No
  Sender: FDA-Public Use
  Company Number: US-GLAXOSMITHKLINE-A0944629A

PATIENT
  Age: 61 Year
  Sex: Female

DRUGS (5)
  1. PROTONIX [Concomitant]
  2. COREG CR [Suspect]
     Indication: HYPERTENSION
     Dosage: 40MG PER DAY
     Route: 048
     Dates: start: 20070101
  3. ASPIRIN [Concomitant]
  4. NORVASC [Concomitant]
  5. COREG [Suspect]
     Indication: HYPERTENSION
     Route: 048
     Dates: start: 20060101, end: 20070101

REACTIONS (5)
  - MOBILITY DECREASED [None]
  - HYPOAESTHESIA [None]
  - SWELLING [None]
  - DRUG INEFFECTIVE [None]
  - MUSCLE SPASMS [None]
